FAERS Safety Report 7266816-1 (Version None)
Quarter: 2011Q1

REPORT INFORMATION
  Report Type: 
  Country: None (occurrence: None)
  Receive Date: 20110201
  Receipt Date: 20110121
  Transmission Date: 20110831
  Serious: Yes (Other)
  Sender: FDA-Public Use
  Company Number: CA-JNJFOC-20110106671

PATIENT
  Sex: Female
  Weight: 127 kg

DRUGS (13)
  1. REMICADE [Suspect]
     Indication: CROHN'S DISEASE
     Route: 042
  2. GRAVOL TAB [Concomitant]
  3. REMICADE [Suspect]
     Route: 042
  4. METFORMIN [Concomitant]
  5. HUMALOG [Concomitant]
  6. VENTOLIN [Concomitant]
  7. CELEBREX [Concomitant]
  8. INSULIN [Concomitant]
  9. SYMBICORT [Concomitant]
  10. AVANDIA [Concomitant]
  11. CETIRIZINE HCL [Concomitant]
  12. TYLENOL NO.4 [Concomitant]
  13. BIRTH CONTROL PILLS [Concomitant]

REACTIONS (1)
  - HERNIA [None]
